FAERS Safety Report 7543801-3 (Version None)
Quarter: 2011Q2

REPORT INFORMATION
  Report Type: 
  Country: None (occurrence: None)
  Receive Date: 20110613
  Receipt Date: 20110601
  Transmission Date: 20111010
  Serious: Yes (Hospitalization, Other)
  Sender: FDA-Public Use
  Company Number: FR-PFIZER INC-FR-WYE-H13553910

PATIENT
  Age: 53 Year
  Sex: Male
  Weight: 96 kg

DRUGS (5)
  1. ZOCOR [Concomitant]
     Indication: HYPERTRIGLYCERIDAEMIA
     Dosage: UNK
     Dates: start: 20090907
  2. BEVACIZUMAB [Suspect]
     Indication: RENAL CELL CARCINOMA
     Dosage: 10.0 MG/KG, 1X/2 WK
     Route: 042
     Dates: start: 20090622, end: 20100208
  3. TEMSIROLIMUS [Suspect]
     Indication: RENAL CELL CARCINOMA
     Dosage: 25 MG, WEEKLY
     Route: 042
     Dates: start: 20090622, end: 20100208
  4. LASIX [Concomitant]
     Indication: OEDEMA PERIPHERAL
     Dosage: UNK
     Dates: start: 20100119
  5. AMLODIPINE [Concomitant]
     Indication: HYPERTENSION
     Dosage: UNK
     Dates: start: 20091207, end: 20100222

REACTIONS (1)
  - PROTEINURIA [None]
